FAERS Safety Report 14630421 (Version 1)
Quarter: 2018Q1

REPORT INFORMATION
  Report Type: Spontaneous
  Country: US (occurrence: US)
  Receive Date: 20180313
  Receipt Date: 20180313
  Transmission Date: 20180509
  Serious: Yes (Other)
  Sender: FDA-Public Use
  Company Number: None

PATIENT
  Age: 21 Year
  Sex: Male
  Weight: 83.25 kg

DRUGS (2)
  1. BPI PRE-WORKOUT [Suspect]
     Active Substance: DIETARY SUPPLEMENT
     Dosage: QUANTITY:1 SCOOP;?
     Route: 048
  2. MELOXICAM. [Suspect]
     Active Substance: MELOXICAM
     Indication: ARTHRITIS
     Dosage: ?          QUANTITY:1 TABLET(S);?
     Route: 048

REACTIONS (4)
  - Nausea [None]
  - Abdominal discomfort [None]
  - Vomiting [None]
  - Hypophagia [None]

NARRATIVE: CASE EVENT DATE: 20170810
